FAERS Safety Report 26165519 (Version 1)
Quarter: 2025Q4

REPORT INFORMATION
  Report Type: Spontaneous
  Country: US (occurrence: None)
  Receive Date: 20251216
  Receipt Date: 20251216
  Transmission Date: 20260118
  Serious: No
  Sender: FDA-CTU
  Company Number: None

PATIENT
  Age: 75 Year
  Sex: Male
  Weight: 72 kg

DRUGS (3)
  1. XDEMVY [Suspect]
     Active Substance: LOTILANER
     Indication: Tic
     Dosage: OTHER QUANTITY : 10 DROP(S);?FREQUENCY : TWICE A DAY;
     Route: 047
     Dates: start: 20251126, end: 20251129
  2. SILODOSIN [Concomitant]
     Active Substance: SILODOSIN
  3. VITAMINS [Concomitant]
     Active Substance: VITAMINS

REACTIONS (3)
  - Eye irritation [None]
  - Metamorphopsia [None]
  - Migraine [None]

NARRATIVE: CASE EVENT DATE: 20251126
